FAERS Safety Report 23589650 (Version 3)
Quarter: 2024Q3

REPORT INFORMATION
  Report Type: Report from Study
  Country: US (occurrence: US)
  Receive Date: 20240304
  Receipt Date: 20240819
  Transmission Date: 20241016
  Serious: Yes (Other)
  Sender: ABBVIE
  Company Number: US-ABBVIE-5659927

PATIENT
  Sex: Female

DRUGS (2)
  1. SKYRIZI [Suspect]
     Active Substance: RISANKIZUMAB-RZAA
     Indication: Psoriatic arthropathy
     Dosage: END DATE: 2024
     Route: 058
     Dates: start: 20240130
  2. SKYRIZI [Suspect]
     Active Substance: RISANKIZUMAB-RZAA
     Route: 058
     Dates: start: 202201

REACTIONS (4)
  - Ovarian cyst [Unknown]
  - Discomfort [Unknown]
  - Psoriatic arthropathy [Not Recovered/Not Resolved]
  - Hysterotomy [Unknown]

NARRATIVE: CASE EVENT DATE: 20240101
